FAERS Safety Report 21788427 (Version 1)
Quarter: 2022Q4

REPORT INFORMATION
  Report Type: Spontaneous
  Country: DE (occurrence: DE)
  Receive Date: 20221228
  Receipt Date: 20221228
  Transmission Date: 20230113
  Serious: Yes (Hospitalization)
  Sender: FDA-Public Use
  Company Number: DE-ELI_LILLY_AND_COMPANY-DE202104010086

PATIENT
  Age: 58 Year
  Sex: Female
  Weight: 74 kg

DRUGS (11)
  1. BARICITINIB [Suspect]
     Active Substance: BARICITINIB
     Indication: Rheumatoid arthritis
     Dosage: UNK, UNKNOWN
     Route: 048
     Dates: start: 201907
  2. TOCILIZUMAB [Concomitant]
     Active Substance: TOCILIZUMAB
     Indication: Rheumatoid arthritis
     Dosage: 162 MG, UNKNOWN
     Route: 065
     Dates: start: 20200909
  3. METAMIZOLE [Concomitant]
     Active Substance: METAMIZOLE
     Indication: Pain
     Dosage: UNK UNK, QID
     Route: 065
     Dates: start: 20210304
  4. LERCANIDIPINE [Concomitant]
     Active Substance: LERCANIDIPINE
     Indication: Depression
     Dosage: 10 MG, UNKNOWN
     Route: 065
     Dates: start: 201905
  5. CANDESARTAN CILEXETIL\HYDROCHLOROTHIAZIDE [Concomitant]
     Active Substance: CANDESARTAN CILEXETIL\HYDROCHLOROTHIAZIDE
     Indication: Hypertension
     Dosage: UNK, UNKNOWN
     Route: 065
     Dates: start: 201905
  6. PANTOPRAZOLE [Concomitant]
     Active Substance: PANTOPRAZOLE
     Indication: Prophylaxis
     Dosage: 40 MG, UNKNOWN
     Route: 065
     Dates: start: 201912
  7. FUROSEMIDE [Concomitant]
     Active Substance: FUROSEMIDE
     Indication: Hypertension
     Dosage: 30 MG, UNKNOWN
     Route: 065
     Dates: start: 202005
  8. FLUTICASONE PROPIONATE\FORMOTEROL FUMARATE [Concomitant]
     Active Substance: FLUTICASONE PROPIONATE\FORMOTEROL FUMARATE
     Indication: Asthma
     Dosage: 250 UG, UNKNOWN
     Route: 065
     Dates: start: 202005
  9. INSULIN NOS [Concomitant]
     Active Substance: INSULIN NOS
     Indication: Diabetes mellitus
     Dosage: UNK, UNKNOWN
     Route: 065
     Dates: start: 202005
  10. SALBUHEXAL [SALBUTAMOL] [Concomitant]
     Indication: Asthma
     Dosage: UNK UNK, UNKNOWN
     Route: 065
     Dates: start: 202005
  11. TILIDINE [Concomitant]
     Active Substance: TILIDINE
     Indication: Pain
     Dosage: UNK, UNKNOWN
     Route: 065
     Dates: start: 202005

REACTIONS (4)
  - Cervicobrachial syndrome [Not Recovered/Not Resolved]
  - Pain [Not Recovered/Not Resolved]
  - Major depression [Not Recovered/Not Resolved]
  - Sciatica [Not Recovered/Not Resolved]
